FAERS Safety Report 11357323 (Version 1)
Quarter: 2015Q3

REPORT INFORMATION
  Report Type: Spontaneous
  Country: US (occurrence: US)
  Receive Date: 20150803
  Receipt Date: 20150803
  Transmission Date: 20151125
  Serious: No
  Sender: FDA-Public Use
  Company Number: US-ELI_LILLY_AND_COMPANY-US201401002841

PATIENT
  Age: 47 Year
  Sex: Female

DRUGS (7)
  1. CALCIUM                            /00751519/ [Concomitant]
  2. ASPIRIN. [Concomitant]
     Active Substance: ASPIRIN
  3. METAMUCIL [Concomitant]
     Active Substance: PLANTAGO SEED
  4. NEXIUM [Concomitant]
     Active Substance: ESOMEPRAZOLE MAGNESIUM
  5. OXYBUTYNIN [Concomitant]
     Active Substance: OXYBUTYNIN
  6. STRATTERA [Suspect]
     Active Substance: ATOMOXETINE HYDROCHLORIDE
     Indication: ATTENTION DEFICIT/HYPERACTIVITY DISORDER
     Dosage: 40 MG, QD
     Route: 065
     Dates: start: 201312
  7. GLUSAMIN [Concomitant]

REACTIONS (6)
  - Libido decreased [Unknown]
  - Constipation [Unknown]
  - Urinary hesitation [Unknown]
  - Dry mouth [Unknown]
  - Chest discomfort [Unknown]
  - Depressed mood [Unknown]

NARRATIVE: CASE EVENT DATE: 201401
